FAERS Safety Report 4735566-5 (Version None)
Quarter: 2005Q3

REPORT INFORMATION
  Report Type: 
  Country: None (occurrence: None)
  Receive Date: 20050805
  Receipt Date: 20041123
  Transmission Date: 20060218
  Serious: Yes (Hospitalization, Other)
  Sender: FDA-Public Use
  Company Number: US-MERCK-0411USA03708

PATIENT
  Age: 82 Year
  Sex: Female
  Weight: 64 kg

DRUGS (8)
  1. VIOXX [Suspect]
     Indication: ARTHRITIS
     Route: 048
     Dates: end: 20040315
  2. ACTONEL [Concomitant]
     Route: 065
  3. TYLENOL (CAPLET) [Concomitant]
     Route: 065
  4. ASPIRIN [Concomitant]
     Route: 065
  5. FLONASE [Concomitant]
     Route: 065
  6. LIPITOR [Concomitant]
     Route: 048
  7. SYNTHROID [Concomitant]
     Route: 048
  8. ICAPS [Concomitant]
     Route: 065

REACTIONS (17)
  - ADVERSE EVENT [None]
  - ANGINA PECTORIS [None]
  - AORTIC VALVE DISEASE MIXED [None]
  - ATRIAL FIBRILLATION [None]
  - BLADDER DISORDER [None]
  - CARDIAC VALVE DISEASE [None]
  - CORONARY ARTERY DISEASE [None]
  - HEART RATE IRREGULAR [None]
  - MITRAL VALVE INCOMPETENCE [None]
  - MYOCARDIAL INFARCTION [None]
  - MYOCARDIAL ISCHAEMIA [None]
  - OEDEMA PERIPHERAL [None]
  - RENAL FAILURE CHRONIC [None]
  - SINUS BRADYCARDIA [None]
  - TRICUSPID VALVE INCOMPETENCE [None]
  - VENTRICULAR HYPERTROPHY [None]
  - VISION BLURRED [None]
